FAERS Safety Report 22319617 (Version 1)
Quarter: 2023Q2

REPORT INFORMATION
  Report Type: Spontaneous
  Country: US (occurrence: US)
  Receive Date: 20230515
  Receipt Date: 20230515
  Transmission Date: 20230721
  Serious: Yes (Hospitalization)
  Sender: FDA-Public Use
  Company Number: US-MYLANLABS-2023M1049342

PATIENT
  Age: 30 Year
  Sex: Male

DRUGS (1)
  1. MAGNESIUM [Suspect]
     Active Substance: MAGNESIUM
     Indication: Enema administration
     Dosage: 8.75 GRAM (RECEIVED ENEMA)
     Route: 054

REACTIONS (3)
  - Toxicity to various agents [Recovered/Resolved]
  - Hypermagnesaemia [Recovered/Resolved]
  - Acute respiratory distress syndrome [Recovered/Resolved]
